FAERS Safety Report 8007539-0 (Version None)
Quarter: 2011Q4

REPORT INFORMATION
  Report Type: 
  Country: None (occurrence: None)
  Receive Date: 20111227
  Receipt Date: 20111216
  Transmission Date: 20120403
  Serious: Yes (Other)
  Sender: FDA-Public Use
  Company Number: US-BAYER-2011-075940

PATIENT
  Age: 35 Year
  Sex: Female
  Weight: 90.72 kg

DRUGS (3)
  1. LIDOCAINE [Concomitant]
     Indication: ANALGESIC THERAPY
     Dosage: 1 %, UNK
  2. MIRENA [Suspect]
     Indication: CONTRACEPTION
     Dosage: 20 MCG/24HR, CONT
     Route: 015
     Dates: start: 20110817, end: 20110817
  3. MIRENA [Suspect]
     Indication: MENORRHAGIA
     Dosage: UNK
     Dates: start: 20111003

REACTIONS (1)
  - UTERINE PERFORATION [None]
